FAERS Safety Report 9164405 (Version 1)
Quarter: 2013Q1

REPORT INFORMATION
  Report Type: Spontaneous
  Country: GB (occurrence: None)
  Receive Date: 20130226
  Receipt Date: 20130226
  Transmission Date: 20140127
  Serious: No
  Sender: FDA-Public Use
  Company Number: GER/UKI/13/0028159

PATIENT
  Age: 79 None
  Sex: Male

DRUGS (5)
  1. OLANZAPINE (OLANZAPINE) [Suspect]
     Indication: PRODUCT USED FOR UNKNOWN INDICATION
     Dosage: 15MG, 1 IN 1 D
  2. LITHIUM (LITHIUM) UNKNOWN [Suspect]
     Dosage: 600 MG, 1 IN 1 D
  3. TRAZODONE (TRAZODONE) [Suspect]
  4. VENLAFAXINE (VENLAFAXINE) [Suspect]
  5. BUSPIRONE (BUSPIRONE [Concomitant]

REACTIONS (1)
  - Ventricular tachyarrhythmia [None]
